FAERS Safety Report 14460355 (Version 1)
Quarter: 2018Q1

REPORT INFORMATION
  Report Type: Spontaneous
  Country: US (occurrence: US)
  Receive Date: 20180130
  Receipt Date: 20180130
  Transmission Date: 20180509
  Serious: Yes (Hospitalization, Other)
  Sender: FDA-Public Use
  Company Number: US-GLAXOSMITHKLINE-US2018014373

PATIENT
  Age: 62 Year
  Sex: Female

DRUGS (10)
  1. ADVAIR HFA [Suspect]
     Active Substance: FLUTICASONE PROPIONATE\SALMETEROL XINAFOATE
     Indication: CHRONIC OBSTRUCTIVE PULMONARY DISEASE
     Dosage: 2 PUFF(S), QD
     Route: 055
     Dates: start: 201101, end: 201102
  2. CLONAZEPAM. [Concomitant]
     Active Substance: CLONAZEPAM
  3. PREDNISONE. [Concomitant]
     Active Substance: PREDNISONE
  4. BREO ELLIPTA [Suspect]
     Active Substance: FLUTICASONE FUROATE\VILANTEROL TRIFENATATE
     Indication: CHRONIC OBSTRUCTIVE PULMONARY DISEASE
     Dosage: 1 PUFF(S), QD
     Route: 055
     Dates: start: 2016
  5. SPIRIVA RESPIMAT [Concomitant]
     Active Substance: TIOTROPIUM BROMIDE
  6. ASPIRIN. [Concomitant]
     Active Substance: ASPIRIN
  7. ATENOLOL. [Concomitant]
     Active Substance: ATENOLOL
  8. ACETAMINOPHEN. [Concomitant]
     Active Substance: ACETAMINOPHEN
  9. CHLORTHALIDONE. [Concomitant]
     Active Substance: CHLORTHALIDONE
  10. FLUTICASONE NASAL SPRAY [Concomitant]
     Active Substance: FLUTICASONE

REACTIONS (15)
  - Upper respiratory tract infection [Recovered/Resolved]
  - Secretion discharge [Unknown]
  - Product use in unapproved indication [Recovered/Resolved]
  - Breast cancer [Unknown]
  - Pneumonia [Recovered/Resolved]
  - Chronic sinusitis [Recovered/Resolved]
  - Arthralgia [Recovered/Resolved]
  - Dyspnoea [Unknown]
  - Myalgia [Recovered/Resolved]
  - Bone pain [Recovered/Resolved]
  - Fall [Unknown]
  - Underdose [Recovered/Resolved]
  - Spinal compression fracture [Recovered/Resolved]
  - Malaise [Unknown]
  - Mastectomy [Recovered/Resolved]

NARRATIVE: CASE EVENT DATE: 2011
